FAERS Safety Report 5503294-4 (Version None)
Quarter: 2007Q4

REPORT INFORMATION
  Report Type: 
  Country: None (occurrence: None)
  Receive Date: 20071031
  Receipt Date: 20071018
  Transmission Date: 20080405
  Serious: No
  Sender: FDA-Public Use
  Company Number: US-SHR-US-2007-004605

PATIENT
  Age: 1 Day
  Sex: Female
  Weight: 3.487 kg

DRUGS (5)
  1. PRENATAL VITAMINS [Concomitant]
     Dates: start: 20061031
  2. FOLIC ACID [Concomitant]
  3. BETAFERON [Suspect]
     Dosage: 250 A?G, EVERY 2D
     Route: 064
     Dates: end: 20061005
  4. CALCIUM [Concomitant]
  5. CENTRUM [Concomitant]

REACTIONS (1)
  - NO ADVERSE REACTION [None]
